FAERS Safety Report 4429192-5 (Version None)
Quarter: 2004Q3

REPORT INFORMATION
  Report Type: 
  Country: None (occurrence: None)
  Receive Date: 20040726
  Receipt Date: 20040524
  Transmission Date: 20050211
  Serious: No
  Sender: FDA-Public Use
  Company Number: USA040258276

PATIENT
  Age: 79 Year
  Sex: Female
  Weight: 51 kg

DRUGS (9)
  1. FORTEO [Suspect]
     Indication: OSTEOPOROSIS
     Dosage: 20 UG/DAY
     Dates: start: 20031101
  2. CALCIUM [Concomitant]
  3. DIOVAN [Concomitant]
  4. LOPRESSOR [Concomitant]
  5. ALPRAZOLAM [Concomitant]
  6. AUGMENTIN '125' [Concomitant]
  7. ALBUTEROL [Concomitant]
  8. SEREVENT [Concomitant]
  9. ACTONEL [Concomitant]

REACTIONS (3)
  - NERVOUSNESS [None]
  - OSTEOPOROSIS [None]
  - TOOTH INJURY [None]
